FAERS Safety Report 14140003 (Version 1)
Quarter: 2017Q4

REPORT INFORMATION
  Report Type: Report from Study
  Country: US (occurrence: US)
  Receive Date: 20171030
  Receipt Date: 20171030
  Transmission Date: 20180321
  Serious: No
  Sender: FDA-Public Use
  Company Number: PHEH2017US034961

PATIENT
  Sex: Male
  Weight: 21.9 kg

DRUGS (1)
  1. OMNITROPE [Suspect]
     Active Substance: SOMATROPIN
     Indication: HYPOPITUITARISM
     Dosage: 0.1 ML, QD X 7 DAYS/WEEK
     Route: 058
     Dates: start: 201412

REACTIONS (5)
  - Decreased appetite [Unknown]
  - Constipation [Unknown]
  - Pain in extremity [Unknown]
  - Dry skin [Unknown]
  - Speech disorder [Recovering/Resolving]
